FAERS Safety Report 11179857 (Version 2)
Quarter: 2015Q2

REPORT INFORMATION
  Report Type: Report from Study
  Country: US (occurrence: None)
  Receive Date: 20150609
  Receipt Date: 20150611
  Transmission Date: 20150821
  Serious: Yes (Disabling, Other)
  Sender: FDA-Public Use
  Company Number: 2015-11466

PATIENT
  Age: 80 Year
  Sex: Male

DRUGS (1)
  1. EYLEA [Suspect]
     Active Substance: AFLIBERCEPT
     Indication: NEOVASCULAR AGE-RELATED MACULAR DEGENERATION
     Route: 031
     Dates: start: 20140320

REACTIONS (2)
  - Endophthalmitis [None]
  - Blindness unilateral [None]

NARRATIVE: CASE EVENT DATE: 201412
